FAERS Safety Report 8009904-4 (Version None)
Quarter: 2011Q4

REPORT INFORMATION
  Report Type: 
  Country: None (occurrence: None)
  Receive Date: 20111228
  Receipt Date: 20111219
  Transmission Date: 20120403
  Serious: Yes (Life-Threatening, Hospitalization)
  Sender: FDA-Public Use
  Company Number: CA-JNJFOC-20111209868

PATIENT
  Sex: Male

DRUGS (8)
  1. REMICADE [Suspect]
     Route: 042
     Dates: start: 20111026
  2. FOLIC ACID [Concomitant]
     Route: 065
  3. CALCIUM ACETATE [Concomitant]
     Route: 065
  4. TESTOSTERONE [Concomitant]
     Route: 065
  5. METRONIDAZOLE [Concomitant]
     Route: 065
  6. REMICADE [Suspect]
     Indication: CROHN'S DISEASE
     Route: 042
     Dates: start: 20040302
  7. METHOTREXATE [Concomitant]
     Route: 065
  8. VITAMIN B-12 [Concomitant]
     Route: 065

REACTIONS (1)
  - CEREBROVASCULAR ACCIDENT [None]
